FAERS Safety Report 7688299-X (Version None)
Quarter: 2011Q3

REPORT INFORMATION
  Report Type: 
  Country: None (occurrence: None)
  Receive Date: 20110817
  Receipt Date: 20110316
  Transmission Date: 20111222
  Serious: No
  Sender: FDA-Public Use
  Company Number: US-KINGPHARMUSA00001-K201100273

PATIENT
  Sex: Male
  Weight: 77.098 kg

DRUGS (3)
  1. CYTOMEL [Suspect]
     Dosage: 10 MG, QD
     Route: 048
     Dates: start: 20110315, end: 20110315
  2. CYTOMEL [Suspect]
     Indication: HYPOTHYROIDISM
     Dosage: 5 MCG, QD
     Route: 048
     Dates: start: 20091104
  3. LEVOTHYROXINE SODIUM [Concomitant]
     Indication: HYPOTHYROIDISM
     Dosage: 75 MCG, QD
     Route: 048

REACTIONS (10)
  - ASTHENIA [None]
  - SOMNOLENCE [None]
  - BLOOD THYROID STIMULATING HORMONE INCREASED [None]
  - BONE PAIN [None]
  - ERUCTATION [None]
  - HYPOTHYROIDISM [None]
  - FLATULENCE [None]
  - FATIGUE [None]
  - DRUG INEFFECTIVE [None]
  - DEPRESSION [None]
